FAERS Safety Report 7217173-8 (Version None)
Quarter: 2011Q1

REPORT INFORMATION
  Report Type: 
  Country: None (occurrence: None)
  Receive Date: 20110110
  Receipt Date: 20100613
  Transmission Date: 20110831
  Serious: Yes (Hospitalization)
  Sender: FDA-Public Use
  Company Number: US-BAYER-200938972NA

PATIENT
  Sex: Female
  Weight: 84 kg

DRUGS (9)
  1. YASMIN [Suspect]
     Indication: PREMENSTRUAL SYNDROME
     Dosage: UNK
  2. LEVSIN [Concomitant]
     Dosage: 0.125 - 0.250MG Q4HR PRN
     Route: 048
  3. TOBREX [Concomitant]
     Dosage: GTTS AFFECTED EYE QID 5-7 DAYS
  4. CYCLOBENZAPRINE [Concomitant]
     Indication: MUSCLE SPASMS
     Dosage: 5-10MG BID PRN SPASMS
  5. IBUPROFEN [Concomitant]
  6. ACETAMINOPHEN [Concomitant]
     Indication: PAIN
  7. LORTAB [Concomitant]
     Indication: PAIN
     Dosage: 7.5 MG; 500 MG - 6HRS PRN PAIN
     Route: 048
  8. NAPROSYN [Concomitant]
     Dosage: WITH FOOD
  9. YAZ [Suspect]
     Indication: PAIN

REACTIONS (7)
  - GALLBLADDER CHOLESTEROLOSIS [None]
  - NAUSEA [None]
  - ABDOMINAL DISTENSION [None]
  - CHOLECYSTITIS [None]
  - FLATULENCE [None]
  - DIARRHOEA [None]
  - ABDOMINAL PAIN UPPER [None]
